FAERS Safety Report 6235598-4 (Version None)
Quarter: 2009Q2

REPORT INFORMATION
  Report Type: 
  Country: None (occurrence: None)
  Receive Date: 20090618
  Receipt Date: 20090608
  Transmission Date: 20091009
  Serious: Yes (Hospitalization)
  Sender: FDA-Public Use
  Company Number: IT-AMGEN-US323657

PATIENT
  Sex: Male

DRUGS (5)
  1. ENBREL [Suspect]
     Indication: PSORIATIC ARTHROPATHY
     Dosage: 50 MG WEEKLY
     Route: 058
     Dates: start: 20080508, end: 20081009
  2. NAPROSYN [Concomitant]
     Dosage: 1 G
     Route: 065
     Dates: start: 20080801
  3. FOLINA [Concomitant]
     Dosage: NOT PROVIDED
     Route: 065
     Dates: start: 19930101
  4. NICOZID [Concomitant]
     Dosage: NOT PROVIDED
     Route: 048
     Dates: start: 20080508
  5. METHOTREXATE [Concomitant]
     Dosage: 15 MG
     Route: 065
     Dates: start: 19930101

REACTIONS (3)
  - DISEASE PROGRESSION [None]
  - DYSGEUSIA [None]
  - PERIPHERAL SENSORY NEUROPATHY [None]
